FAERS Safety Report 7684874-7 (Version None)
Quarter: 2011Q3

REPORT INFORMATION
  Report Type: 
  Country: None (occurrence: None)
  Receive Date: 20110816
  Receipt Date: 20110802
  Transmission Date: 20111222
  Serious: No
  Sender: FDA-Public Use
  Company Number: US-B.I. PHARMACEUTICALS,INC./RIDGEFIELD-2011-BP-13114BP

PATIENT
  Age: 82 Year
  Sex: Male

DRUGS (18)
  1. GABAPENTIN [Concomitant]
     Indication: ARTHRALGIA
     Route: 048
  2. SPIRIVA [Suspect]
     Indication: EMPHYSEMA
     Dosage: 18 MCG
     Route: 055
     Dates: start: 20110401, end: 20110726
  3. BENICAR [Concomitant]
     Indication: HYPERTENSION
     Route: 048
     Dates: start: 20110401
  4. PROSCAR [Concomitant]
     Indication: PROSTATIC DISORDER
     Route: 048
  5. AMBIEN [Concomitant]
     Indication: ANXIETY
     Route: 048
  6. MULTI-VITAMIN [Concomitant]
     Indication: PROPHYLAXIS
  7. HYDROCHLOROTHIAZIDE [Concomitant]
     Indication: HYPERTENSION
     Route: 048
     Dates: start: 20110401
  8. AMBIEN [Concomitant]
     Indication: INSOMNIA
  9. CALCIUM CARBONATE [Concomitant]
     Indication: PROPHYLAXIS
  10. SPIRIVA [Suspect]
     Indication: CHRONIC OBSTRUCTIVE PULMONARY DISEASE
  11. FLOMAX [Concomitant]
     Indication: PROSTATIC DISORDER
     Route: 048
  12. FLOMAX [Concomitant]
     Indication: PROSTATOMEGALY
  13. GABAPENTIN [Concomitant]
     Indication: OSTEOARTHRITIS
  14. NEXIUM [Concomitant]
     Indication: ABDOMINAL DISCOMFORT
     Route: 048
  15. PROSCAR [Concomitant]
     Indication: PROSTATOMEGALY
  16. BENICAR [Concomitant]
     Indication: ARRHYTHMIA
  17. GABAPENTIN [Concomitant]
     Indication: NEUROPATHY PERIPHERAL
  18. XANAX [Concomitant]
     Indication: ANXIETY
     Route: 048

REACTIONS (5)
  - DRUG INEFFECTIVE [None]
  - PROSTATOMEGALY [None]
  - DRY MOUTH [None]
  - DYSPNOEA [None]
  - HEADACHE [None]
